FAERS Safety Report 8612261-3 (Version None)
Quarter: 2012Q3

REPORT INFORMATION
  Report Type: 
  Country: None (occurrence: None)
  Receive Date: 20120822
  Receipt Date: 20120813
  Transmission Date: 20120928
  Serious: Yes (Hospitalization)
  Sender: FDA-Public Use
  Company Number: US-ACTELION-A-US2012-68885

PATIENT
  Age: 13 Year
  Sex: Female

DRUGS (4)
  1. TRACLEER [Suspect]
     Indication: PULMONARY ARTERIAL HYPERTENSION
     Dosage: UNK
     Route: 048
  2. COUMADIN [Concomitant]
  3. REMODULIN [Concomitant]
  4. SILDENAFIL [Concomitant]

REACTIONS (3)
  - MEDICAL DEVICE COMPLICATION [None]
  - CENTRAL VENOUS CATHETERISATION [None]
  - CATHETER SITE HAEMORRHAGE [None]
